FAERS Safety Report 14604650 (Version 3)
Quarter: 2018Q2

REPORT INFORMATION
  Report Type: Report from Study
  Country: DE (occurrence: DE)
  Receive Date: 20180306
  Receipt Date: 20180423
  Transmission Date: 20180711
  Serious: Yes (Hospitalization, Disabling)
  Sender: FDA-Public Use
  Company Number: PHHY2017DE193513

PATIENT
  Sex: Male
  Weight: 105 kg

DRUGS (7)
  1. COSENTYX [Suspect]
     Active Substance: SECUKINUMAB
     Dosage: 300 MG, PER APPLICATION
     Route: 065
     Dates: start: 20170920
  2. COSENTYX [Suspect]
     Active Substance: SECUKINUMAB
     Dosage: 300 MG, PER APPLICATION
     Route: 065
     Dates: start: 20170927
  3. COSENTYX [Suspect]
     Active Substance: SECUKINUMAB
     Dosage: 300 MG, PER APPLICATION
     Route: 065
     Dates: start: 20170913
  4. COSENTYX [Suspect]
     Active Substance: SECUKINUMAB
     Dosage: 300 MG, PER APPLICATION
     Route: 065
     Dates: start: 20171004, end: 20171004
  5. JANUMET [Concomitant]
     Active Substance: METFORMIN HYDROCHLORIDE\SITAGLIPTIN PHOSPHATE
     Indication: DIABETES MELLITUS
     Dosage: UNK UNK, QD
     Route: 048
     Dates: start: 20150101
  6. COSENTYX [Suspect]
     Active Substance: SECUKINUMAB
     Indication: PSORIASIS
     Dosage: 300 MG, ONCE/ PER APPLICATION
     Route: 065
     Dates: start: 20170906
  7. COSENTYX [Suspect]
     Active Substance: SECUKINUMAB
     Dosage: 300 MG, PER APPLICATION
     Route: 065
     Dates: start: 20171101

REACTIONS (21)
  - Obesity [Unknown]
  - Hyperlipidaemia [Unknown]
  - Aortic arteriosclerosis [Unknown]
  - Hypoventilation [Recovering/Resolving]
  - Swelling [Recovering/Resolving]
  - Hypertension [Unknown]
  - Malignant melanoma [Recovered/Resolved]
  - Peripheral arterial occlusive disease [Unknown]
  - Spinal osteoarthritis [Unknown]
  - Enthesopathy [Unknown]
  - Lumbar vertebral fracture [Recovered/Resolved with Sequelae]
  - Aortic valve calcification [Unknown]
  - Osteoarthritis [Unknown]
  - Diffuse idiopathic skeletal hyperostosis [Unknown]
  - Fall [Unknown]
  - Wound haemorrhage [Recovering/Resolving]
  - Hepatomegaly [Unknown]
  - Bone lesion [Unknown]
  - Osteopenia [Unknown]
  - Prostatomegaly [Unknown]
  - Angiosclerosis [Unknown]

NARRATIVE: CASE EVENT DATE: 20171101
